FAERS Safety Report 9259652 (Version 3)
Quarter: 2013Q4

REPORT INFORMATION
  Report Type: Spontaneous
  Country: US (occurrence: US)
  Receive Date: 20130429
  Receipt Date: 20131002
  Transmission Date: 20140711
  Serious: Yes (Death, Hospitalization)
  Sender: FDA-Public Use
  Company Number: US-BIOGENIDEC-2013BI036893

PATIENT
  Age: 68 Year
  Sex: Male

DRUGS (5)
  1. AVONEX [Suspect]
     Indication: PRODUCT USED FOR UNKNOWN INDICATION
     Route: 030
     Dates: start: 20020101, end: 2003
  2. AVONEX [Suspect]
     Indication: PRODUCT USED FOR UNKNOWN INDICATION
     Route: 030
     Dates: start: 2003, end: 2013
  3. ARICEPT [Concomitant]
  4. FLOMAX [Concomitant]
  5. TRIAMTERENE-TCTZ [Concomitant]

REACTIONS (3)
  - Pneumonia [Fatal]
  - Myocardial infarction [Fatal]
  - Dysphagia [Unknown]
